FAERS Safety Report 17833667 (Version 4)
Quarter: 2020Q4

REPORT INFORMATION
  Report Type: Spontaneous
  Country: BR (occurrence: BR)
  Receive Date: 20200528
  Receipt Date: 20201021
  Transmission Date: 20210113
  Serious: Yes (Other)
  Sender: FDA-Public Use
  Company Number: BR-SA-2020SA136365

PATIENT

DRUGS (10)
  1. SOMALGIN CARDIO [Concomitant]
     Active Substance: ASPIRIN\DIHYDROXYALUMINUM AMINOACETATE ANHYDROUS\MAGNESIUM CARBONATE
     Indication: EYE DISORDER
  2. DOXYCYCLINE. [Concomitant]
     Active Substance: DOXYCYCLINE
     Indication: CHEMOTHERAPY
     Dosage: 1 TABLET IN MORNING, QD
     Route: 048
     Dates: start: 202001
  3. SOMALGIN CARDIO [Concomitant]
     Active Substance: ASPIRIN\DIHYDROXYALUMINUM AMINOACETATE ANHYDROUS\MAGNESIUM CARBONATE
     Indication: THROMBOSIS
     Dosage: 1 TALET IN LUNCH TIME, QD
     Route: 048
     Dates: start: 2011
  4. L-GLUTAMINE [GLUTAMIC ACID] [Concomitant]
     Indication: GASTROINTESTINAL CARCINOMA
     Dosage: 1 SPOON SOUP EVERY DAY, QD
     Route: 048
     Dates: start: 202001
  5. LIVALO [Concomitant]
     Active Substance: PITAVASTATIN CALCIUM
     Indication: BLOOD CHOLESTEROL
     Dosage: 1 TABLET AT NIGHT
     Route: 048
     Dates: start: 2015
  6. XIGDUO XR [Concomitant]
     Active Substance: DAPAGLIFLOZIN PROPANEDIOL\METFORMIN HYDROCHLORIDE
     Indication: TYPE 2 DIABETES MELLITUS
     Dosage: 1 TABLET AND 1 TABLET IN NIGHT, BID
     Route: 048
     Dates: start: 2018
  7. APIDRA [Suspect]
     Active Substance: INSULIN GLULISINE
     Indication: TYPE 2 DIABETES MELLITUS
     Dosage: 16 UI BEFORE COFFEE,16 IU BEFORE LUNCH, MID-AFTERNOON 8UI AND BEFORE DINNER 12 UNITS, QID
     Route: 058
  8. PANTOPRAZOLE [Suspect]
     Active Substance: PANTOPRAZOLE
     Indication: ABDOMINAL PAIN UPPER
     Dosage: 1 TABLET IN THE MORNING AND 1 TABLET AT NIGHT AFTER DOING CHEMOTHERAPY TO NOT FEEL PAIN AND WHEN NO
     Route: 048
     Dates: start: 202001
  9. ENALAPRIL [Concomitant]
     Active Substance: ENALAPRIL
     Indication: BLOOD PRESSURE MEASUREMENT
     Dosage: 2 TABLET IN MORNING AND 2 TABLET IN NIGHT, BID
     Route: 048
     Dates: start: 1997
  10. TOUJEO [Suspect]
     Active Substance: INSULIN GLARGINE
     Indication: TYPE 2 DIABETES MELLITUS
     Dosage: 30 IU, QD AT NIGHT
     Route: 058

REACTIONS (8)
  - Product storage error [Unknown]
  - Blood glucose increased [Unknown]
  - Blood glucose abnormal [Unknown]
  - Product use in unapproved indication [Unknown]
  - Multiple use of single-use product [Unknown]
  - Blood glucose increased [Unknown]
  - Neoplasm malignant [Unknown]
  - Device operational issue [Unknown]

NARRATIVE: CASE EVENT DATE: 202001
